FAERS Safety Report 5842710-5 (Version None)
Quarter: 2008Q3

REPORT INFORMATION
  Report Type: 
  Country: None (occurrence: None)
  Receive Date: 20080808
  Receipt Date: 20080729
  Transmission Date: 20090109
  Serious: Yes (Hospitalization, Other)
  Sender: FDA-Public Use
  Company Number: 237175J08USA

PATIENT
  Age: 38 Year
  Sex: Female

DRUGS (3)
  1. REBIF [Suspect]
     Indication: MULTIPLE SCLEROSIS
     Dosage: 44 MCG, 3 IN 1 WEEKS, SUBCUTANEOUS
     Route: 058
     Dates: start: 20070817
  2. LEXAPRO [Concomitant]
  3. ADVIL [Concomitant]

REACTIONS (11)
  - BALANCE DISORDER [None]
  - BEDRIDDEN [None]
  - DYSPEPSIA [None]
  - GLIOMA [None]
  - IMPAIRED GASTRIC EMPTYING [None]
  - MIGRAINE [None]
  - PARAPLEGIA [None]
  - PYREXIA [None]
  - TENDERNESS [None]
  - VERTIGO [None]
  - VOMITING [None]
